FAERS Safety Report 10641242 (Version 3)
Quarter: 2015Q2

REPORT INFORMATION
  Report Type: Spontaneous
  Country: US (occurrence: US)
  Receive Date: 20141209
  Receipt Date: 20150504
  Transmission Date: 20150821
  Serious: Yes (Other)
  Sender: FDA-Public Use
  Company Number: US-PFIZER INC-2014334087

PATIENT
  Sex: Female

DRUGS (2)
  1. CELEBREX [Suspect]
     Active Substance: CELECOXIB
     Dosage: UNK
  2. LYRICA [Suspect]
     Active Substance: PREGABALIN
     Dosage: UNK

REACTIONS (6)
  - Asthma [Unknown]
  - Irritable bowel syndrome [Unknown]
  - Feeling abnormal [Unknown]
  - Insomnia [Unknown]
  - Rotator cuff syndrome [Unknown]
  - Activities of daily living impaired [Unknown]
